FAERS Safety Report 9054081 (Version 2)
Quarter: 2013Q1

REPORT INFORMATION
  Report Type: Spontaneous
  Country: US (occurrence: US)
  Receive Date: 20130208
  Receipt Date: 20130308
  Transmission Date: 20140127
  Serious: Yes (Other)
  Sender: FDA-Public Use
  Company Number: US-JNJFOC-20130115565

PATIENT
  Age: 68 None
  Sex: Female
  Weight: 102 kg

DRUGS (16)
  1. XARELTO [Suspect]
     Indication: THROMBOSIS PROPHYLAXIS
     Route: 048
     Dates: start: 20130122, end: 20130123
  2. XARELTO [Suspect]
     Indication: KNEE ARTHROPLASTY
     Route: 048
     Dates: start: 20130122, end: 20130123
  3. AMARGYL [Concomitant]
     Route: 065
     Dates: start: 20130122, end: 20130125
  4. ATROVENT NEBULIZER [Concomitant]
     Route: 065
     Dates: start: 20130121, end: 20130125
  5. COLACE [Concomitant]
     Route: 048
     Dates: start: 20130121, end: 20130125
  6. COUMADIN [Concomitant]
     Route: 065
     Dates: start: 20130124, end: 20130125
  7. FLONASE [Concomitant]
     Route: 065
     Dates: start: 20130121, end: 20130125
  8. SLOW FE [Concomitant]
     Route: 065
     Dates: start: 20130122, end: 20130125
  9. NICODERM CQ [Concomitant]
     Route: 065
     Dates: start: 20130121, end: 20130125
  10. LOVENOX [Concomitant]
     Route: 065
     Dates: start: 20130123, end: 20130125
  11. NIFEREX FORTE [Concomitant]
     Route: 065
     Dates: start: 20130121, end: 20130122
  12. PAXIL [Concomitant]
     Route: 048
     Dates: start: 20130122, end: 20130125
  13. PROTONIX [Concomitant]
     Route: 048
     Dates: start: 20130122, end: 20130125
  14. SENOKOT [Concomitant]
     Route: 065
     Dates: start: 20130121, end: 20130125
  15. SYNTHROID [Concomitant]
     Route: 065
     Dates: start: 20130122, end: 20130125
  16. ZETIA [Concomitant]
     Route: 065
     Dates: start: 20130121, end: 20130125

REACTIONS (1)
  - Pulmonary embolism [Unknown]
